FAERS Safety Report 10950092 (Version 1)
Quarter: 2015Q1

REPORT INFORMATION
  Report Type: Report from Study
  Country: US (occurrence: US)
  Receive Date: 20150324
  Receipt Date: 20150324
  Transmission Date: 20150721
  Serious: Yes (Hospitalization, Other)
  Sender: FDA-Public Use
  Company Number: US-EXELIXIS-CABO-14004738

PATIENT
  Sex: Male
  Weight: 65.9 kg

DRUGS (5)
  1. CABOZANTINIB [Suspect]
     Active Substance: CABOZANTINIB
     Indication: THYROID CANCER
     Dosage: 140 MG, QD
     Route: 048
     Dates: start: 20140730, end: 20140819
  2. HYDROCHLOROTHIAZIDE. [Concomitant]
     Active Substance: HYDROCHLOROTHIAZIDE
  3. CABOZANTINIB [Suspect]
     Active Substance: CABOZANTINIB
     Dosage: 100 MG, QD
     Route: 048
     Dates: start: 20140826, end: 20141001
  4. CABOZANTINIB [Suspect]
     Active Substance: CABOZANTINIB
     Dosage: 60 MG, QD
  5. ZOCOR [Concomitant]
     Active Substance: SIMVASTATIN

REACTIONS (6)
  - Weight decreased [Recovering/Resolving]
  - Fatigue [Recovering/Resolving]
  - Decreased appetite [Unknown]
  - Diarrhoea [Not Recovered/Not Resolved]
  - Impaired healing [Unknown]
  - Wound [Unknown]

NARRATIVE: CASE EVENT DATE: 2014
